FAERS Safety Report 5929908-2 (Version None)
Quarter: 2008Q4

REPORT INFORMATION
  Report Type: 
  Country: None (occurrence: None)
  Receive Date: 20081024
  Receipt Date: 20081015
  Transmission Date: 20090506
  Serious: Yes (Life-Threatening, Hospitalization)
  Sender: FDA-Public Use
  Company Number: JP-PFIZER INC-2008045745

PATIENT
  Sex: Male

DRUGS (4)
  1. CELECOX [Suspect]
     Indication: POLYMYALGIA RHEUMATICA
     Route: 048
     Dates: start: 20080425, end: 20080503
  2. PREDNISOLONE [Concomitant]
     Indication: POLYMYALGIA RHEUMATICA
     Dosage: TEXT:4-10 (DF)
     Route: 048
     Dates: start: 20071101
  3. SOLON [Concomitant]
     Route: 048
     Dates: end: 20080501
  4. LOXONIN [Concomitant]
     Indication: POLYMYALGIA RHEUMATICA
     Route: 048
     Dates: end: 20080425

REACTIONS (1)
  - VENTRICULAR TACHYCARDIA [None]
